FAERS Safety Report 9661447 (Version 2)
Quarter: 2013Q4

REPORT INFORMATION
  Report Type: Spontaneous
  Country: US (occurrence: US)
  Receive Date: 20131031
  Receipt Date: 20131031
  Transmission Date: 20140711
  Serious: No
  Sender: FDA-Public Use
  Company Number: US-PURDUE-USA-2010-0053832

PATIENT
  Age: 49 Year
  Sex: Female
  Weight: 54.42 kg

DRUGS (4)
  1. OXYCONTIN (NDA 22-272) [Suspect]
     Indication: PAIN
     Dosage: 240 MG, BID
     Route: 048
     Dates: start: 201009, end: 201010
  2. OXYCONTIN (NDA 22-272) [Suspect]
     Dosage: 120 MG, TID
     Dates: end: 201010
  3. OXYCODONE HYDROCHLORIDE (SIMILAR TO NDA 22-272) [Concomitant]
     Indication: BREAKTHROUGH PAIN
     Dosage: UNK
     Dates: start: 200611
  4. DILAUDID TABLET [Concomitant]
     Indication: BREAKTHROUGH PAIN
     Dosage: UNK
     Dates: start: 200611

REACTIONS (5)
  - Foreign body [Unknown]
  - Drug effect decreased [Unknown]
  - Abdominal discomfort [Unknown]
  - Inadequate analgesia [Unknown]
  - Product gel formation [Unknown]
